FAERS Safety Report 9165370 (Version 4)
Quarter: 2013Q2

REPORT INFORMATION
  Report Type: Report from Study
  Country: CH (occurrence: CH)
  Receive Date: 20130315
  Receipt Date: 20130607
  Transmission Date: 20140414
  Serious: Yes (Life-Threatening, Hospitalization)
  Sender: FDA-Public Use
  Company Number: CH-BRISTOL-MYERS SQUIBB COMPANY-17458183

PATIENT
  Age: 73 Year
  Sex: Male

DRUGS (2)
  1. CETUXIMAB [Suspect]
     Indication: HEAD AND NECK CANCER
     Dosage: CETUXIMAB IV INF
     Route: 042
     Dates: start: 20130109, end: 20130226
  2. CISPLATIN FOR INJ [Suspect]
     Indication: HEAD AND NECK CANCER
     Route: 042
     Dates: start: 20130115, end: 20130226

REACTIONS (3)
  - Atrial flutter [Recovered/Resolved with Sequelae]
  - Stress cardiomyopathy [Recovered/Resolved]
  - Multi-organ failure [Recovered/Resolved]
